FAERS Safety Report 7312558-3 (Version None)
Quarter: 2011Q1

REPORT INFORMATION
  Report Type: 
  Country: None (occurrence: None)
  Receive Date: 20110224
  Receipt Date: 20110217
  Transmission Date: 20110831
  Serious: Yes (Life-Threatening, Other)
  Sender: FDA-Public Use
  Company Number: PHHY2011CH13419

PATIENT
  Age: 89 Year
  Sex: Female

DRUGS (17)
  1. ATROPINE [Concomitant]
     Dosage: 0.5 MG, BID
     Route: 042
     Dates: start: 20110120, end: 20110120
  2. DIGOXIN [Suspect]
     Dosage: 0.25 MG, TID
     Route: 042
     Dates: end: 20110123
  3. COMBIGAN [Suspect]
     Dosage: 1 GTT, UNK
     Route: 047
     Dates: end: 20110121
  4. TOREM [Concomitant]
     Dosage: 5 MG, QD
     Route: 048
     Dates: end: 20110118
  5. TIENAM [Concomitant]
     Dosage: 500 MG, QID
     Dates: start: 20110126, end: 20110121
  6. MULTAQ [Suspect]
     Dosage: 400 MG, BID
     Dates: start: 20110118, end: 20110128
  7. CALCIMAGON-D3 [Concomitant]
     Dosage: 100 ML, QD
  8. ATROPINE [Concomitant]
     Dosage: 0.5 MG, BID
     Dates: start: 20110120
  9. ATROPINE [Concomitant]
     Dosage: 0.25 MG, TID
     Dates: start: 20110123
  10. ASPIRIN [Concomitant]
     Dosage: 100 MG, QD
     Route: 048
     Dates: start: 20110118, end: 20110125
  11. NEO-MERCAZOLE TAB [Concomitant]
     Dosage: 10 MG, TID
     Dates: start: 20110125
  12. TIENAM [Concomitant]
     Dosage: 500 MG, TID
     Route: 042
     Dates: start: 20110122
  13. TAMOXIFEN [Concomitant]
     Dosage: 20 MG, QD
  14. DIGOXIN [Suspect]
     Dosage: 0.5 MG, BID
     Route: 042
     Dates: start: 20110120
  15. DOBUTAMINE HCL [Concomitant]
     Dosage: UNK
     Route: 042
     Dates: start: 20110120, end: 20110120
  16. COSOPT [Suspect]
     Dosage: 1 GTT, DROP
     Route: 047
     Dates: end: 20110121
  17. CLEXANE [Concomitant]
     Dosage: 40 MG, QD
     Dates: start: 20110125

REACTIONS (7)
  - BRADYCARDIA [None]
  - ATRIAL FIBRILLATION [None]
  - PYREXIA [None]
  - SINUS ARREST [None]
  - INFLAMMATION [None]
  - HYPOTENSION [None]
  - CARDIOGENIC SHOCK [None]
